FAERS Safety Report 4335452-9 (Version None)
Quarter: 2004Q2

REPORT INFORMATION
  Report Type: 
  Country: None (occurrence: None)
  Receive Date: 20040409
  Receipt Date: 20040401
  Transmission Date: 20050107
  Serious: Yes (Other)
  Sender: FDA-Public Use
  Company Number: US-BRISTOL-MYERS SQUIBB COMPANY-12548996

PATIENT
  Age: 34 Year
  Sex: Male

DRUGS (4)
  1. ETOPOSIDE [Suspect]
     Indication: BURKITT'S LYMPHOMA
  2. IFOSFAMIDE [Suspect]
     Indication: BURKITT'S LYMPHOMA
  3. METHOTREXATE [Suspect]
     Indication: BURKITT'S LYMPHOMA
  4. CYTARABINE [Suspect]
     Indication: BURKITT'S LYMPHOMA

REACTIONS (3)
  - FEBRILE NEUTROPENIA [None]
  - INFECTION [None]
  - LIVER TRANSPLANT REJECTION [None]
